FAERS Safety Report 22142568 (Version 1)
Quarter: 2023Q1

REPORT INFORMATION
  Report Type: Spontaneous
  Country: GB (occurrence: GB)
  Receive Date: 20230327
  Receipt Date: 20230327
  Transmission Date: 20230418
  Serious: Yes (Other)
  Sender: FDA-Public Use
  Company Number: None

PATIENT
  Age: 60 Year
  Sex: Female
  Weight: 81 kg

DRUGS (9)
  1. FAMOTIDINE [Suspect]
     Active Substance: FAMOTIDINE
     Indication: Ill-defined disorder
     Dosage: UNK
     Route: 065
     Dates: start: 20230222
  2. ESTRADIOL [Concomitant]
     Active Substance: ESTRADIOL
     Indication: Ill-defined disorder
     Dosage: 1 DOSAGE FORM (APPLY ONE TWICE WEEKLY)
     Route: 065
     Dates: start: 20220627
  3. FAMOTIDINE [Concomitant]
     Active Substance: FAMOTIDINE
     Indication: Ill-defined disorder
     Dosage: 1 DOSAGE FORM, BID (TAKE 1 TWICE ADAY)
     Route: 065
     Dates: start: 20230123, end: 20230220
  4. FLUTICASONE FUROATE [Concomitant]
     Active Substance: FLUTICASONE FUROATE
     Indication: Ill-defined disorder
     Dosage: UNK(TWO SPRAYS INTO EACH NOSTRIL ONCE DAILY)
     Route: 065
     Dates: start: 20210819
  5. IPRATROPIUM BROMIDE [Concomitant]
     Active Substance: IPRATROPIUM BROMIDE
     Indication: Ill-defined disorder
     Dosage: UNK (TWO SPRAYS IN EACH NOSTRIL TWO TO THREE TIMES A)
     Route: 065
     Dates: start: 20230202, end: 20230302
  6. KELHALE [Concomitant]
     Indication: Ill-defined disorder
     Dosage: UNK, BID (TAKE ONE TO TWO PUFFS TWICE A DAY TO HELP PREVE)
     Route: 065
     Dates: start: 20230307
  7. QVAR [Concomitant]
     Active Substance: BECLOMETHASONE DIPROPIONATE
     Indication: Ill-defined disorder
     Dosage: UNK, BID (1-2 PUFFS TWICE A DAY REGULARLY FOR ASTHMA)
     Route: 065
     Dates: start: 20210819, end: 20230307
  8. QVAR [Concomitant]
     Active Substance: BECLOMETHASONE DIPROPIONATE
     Indication: Asthma
  9. ALBUTEROL [Concomitant]
     Active Substance: ALBUTEROL
     Indication: Ill-defined disorder
     Dosage: UNK, QID (INHALE ONE TO TWO PUFFS UP TO FOUR TIMES A DAY)
     Route: 065
     Dates: start: 20220722

REACTIONS (2)
  - Swollen tongue [Recovered/Resolved]
  - Vomiting [Recovered/Resolved]

NARRATIVE: CASE EVENT DATE: 20230320
